FAERS Safety Report 6068738-0 (Version None)
Quarter: 2009Q1

REPORT INFORMATION
  Report Type: 
  Country: None (occurrence: None)
  Receive Date: 20090206
  Receipt Date: 20090121
  Transmission Date: 20090719
  Serious: Yes (Other)
  Sender: FDA-Public Use
  Company Number: PHHY2009DE04201

PATIENT
  Age: 56 Year
  Sex: Male
  Weight: 66 kg

DRUGS (4)
  1. MYFORTIC [Suspect]
     Indication: OPTIC NEURITIS
     Dosage: 720 MG, BID
     Route: 048
  2. AZATHIOPRINE [Concomitant]
     Indication: OPTIC NEURITIS
     Dosage: UNK
     Dates: start: 20050601, end: 20050801
  3. METHOTREXATE [Concomitant]
     Dosage: 20 MG, UNK
     Route: 058
     Dates: start: 20051201
  4. CORTICOSTEROIDS [Concomitant]
     Dosage: 13 MG, UNK

REACTIONS (3)
  - FATIGUE [None]
  - LEUKOCYTOSIS [None]
  - THROMBOCYTHAEMIA [None]
